FAERS Safety Report 11165022 (Version 2)
Quarter: 2015Q2

REPORT INFORMATION
  Report Type: Report from Study
  Country: IL (occurrence: IL)
  Receive Date: 20150604
  Receipt Date: 20150611
  Transmission Date: 20150821
  Serious: No
  Sender: FDA-Public Use
  Company Number: PHHO2015IL009694

PATIENT
  Age: 52 Year
  Sex: Female

DRUGS (2)
  1. FEMARA [Concomitant]
     Active Substance: LETROZOLE
     Indication: OVARIAN CANCER
     Dosage: 2.5
     Route: 048
     Dates: start: 20070715, end: 20150610
  2. ZOLEDRONATE [Suspect]
     Active Substance: ZOLEDRONIC ACID
     Indication: OVARIAN CANCER
     Dosage: 4
     Route: 041
     Dates: start: 20040814, end: 20070715

REACTIONS (1)
  - Seizure [Recovered/Resolved]

NARRATIVE: CASE EVENT DATE: 20080702
